FAERS Safety Report 23727328 (Version 1)
Quarter: 2024Q2

REPORT INFORMATION
  Report Type: Spontaneous
  Country: US (occurrence: US)
  Receive Date: 20240410
  Receipt Date: 20240410
  Transmission Date: 20240715
  Serious: Yes (Hospitalization)
  Sender: FDA-Public Use
  Company Number: US-BRISTOL-MYERS SQUIBB COMPANY-2024-053424

PATIENT
  Age: 75 Year
  Sex: Female

DRUGS (25)
  1. REVLIMID [Suspect]
     Active Substance: LENALIDOMIDE
     Indication: Plasma cell myeloma
     Dosage: DAILY
     Route: 048
     Dates: start: 20211204
  2. REVLIMID [Suspect]
     Active Substance: LENALIDOMIDE
     Dosage: TAKE 1 CAPSULE BY MOUTH DAILY FOR 14 DAYS FOLLOWED BY 7 DAYS OFF
     Route: 048
  3. REVLIMID [Suspect]
     Active Substance: LENALIDOMIDE
     Dosage: TAKE 1 CAPSULE BY MOUTH DAILY FOR A 28 DAY CYCLE
     Route: 048
  4. ACYCLOVIR [Concomitant]
     Active Substance: ACYCLOVIR
     Indication: Product used for unknown indication
     Dosage: LAST SOLD DATE: 24-JAN-2023?TAKE 1 CAPSULE BY MOUTH TWICE DAILY EVERY DAY WHILE TAKING CHEMO
     Route: 048
  5. ALBUTEROL SULFATE [Concomitant]
     Active Substance: ALBUTEROL SULFATE
     Indication: Product used for unknown indication
     Dosage: LAST SOLD DATE: 19-JAN-2024?200 PUFFS; INHALE 2 PUFFS BY MOUTH EVERY 4 HOURS
     Route: 048
  6. AMLODIPINE BESYLATE [Concomitant]
     Active Substance: AMLODIPINE BESYLATE
     Indication: Product used for unknown indication
     Dosage: LAST SOLD DATE: 07-FEB-2024?TAKE 1 TABLET BY MOUTH EVERY DAY
     Route: 048
  7. ALLOPURINOL [Concomitant]
     Active Substance: ALLOPURINOL
     Indication: Product used for unknown indication
     Dosage: LAST SOLD DATE: 08-MAR-2024?TAKE 1 TABLET BY MOUTH EVERY DAY
     Route: 048
  8. AMOXICILLIN\CLAVULANIC ACID [Concomitant]
     Active Substance: AMOXICILLIN\CLAVULANIC ACID
     Indication: Product used for unknown indication
     Dosage: LAST SOLD DATE: 06-MAY-2023?TAKE 1 TABLET BY MOUTH EVERY 12 HOURS FOR 14 DAYS?875-125 MG
     Route: 048
  9. AZELASTINE [Concomitant]
     Active Substance: AZELASTINE\AZELASTINE HYDROCHLORIDE
     Indication: Product used for unknown indication
     Dosage: LAST SOLD DATE: 01-APR-2023?INSTILL 1 DROP IN AFFECTED EYES TWICE DAILY?0.05%, 6ML
     Route: 047
  10. CETIRIZINE [Concomitant]
     Active Substance: CETIRIZINE HYDROCHLORIDE
     Indication: Product used for unknown indication
     Dosage: LAST SOLD DATE: 21-JAN-2023?TAKE 1 TABLET BY MOUTH EVERY DAY
     Route: 048
  11. COMIRNATY (TOZINAMERAN) [Concomitant]
     Active Substance: TOZINAMERAN
     Indication: COVID-19
     Dosage: LAST SOLD DATE: 11-MAR-2023?ADMINISTER 0.3ML IN THE MUSCLE AS DIRECTED TODAY
     Route: 030
  12. MODERNA COVID-19 VACCINE [Concomitant]
     Active Substance: ELASOMERAN
     Indication: Product used for unknown indication
     Dosage: LAST SOLD DATE: 13-AUG-2022?ADMINISTER 0.25ML IN THE MUSCLE AS DIRECTED TODAY; 5ML
     Route: 030
  13. DICLOFENAC SODIUM [Concomitant]
     Active Substance: DICLOFENAC\DICLOFENAC SODIUM
     Indication: Product used for unknown indication
     Dosage: LAST SOLD DATE: 29-JUL-2023, 08-MAR-2024, 15-OCT-2022?DR, TAKE 1 TABLET BY MOUTH TWICE DAILY
     Route: 048
  14. FERROUS SULFATE [Concomitant]
     Active Substance: FERROUS SULFATE
     Indication: Product used for unknown indication
     Dosage: LAST SOLD DATE: 19-MAY-2023, 23-SEP-2023?5GR; TAKE 1 TABLET BY MOUTH EVERY DAY
     Route: 048
  15. FLUAD NOS [Concomitant]
     Active Substance: INFLUENZA VIRUS VACCINE
     Indication: Product used for unknown indication
     Dosage: LAST SOLD DATE: 09-OCT-2023?ADMINISTER 0.5ML IN THE MUSCLE TODAY?PF INJ 2023-24
     Route: 030
  16. FLUAD QUAD [Concomitant]
     Indication: Product used for unknown indication
     Dosage: LAST SOLD DATE: 07-OCT-2022?ADMINISTER 0.5ML IN THE MUSCLE AS DIRECTED TODAY?QUAD PF INJ 2022-23
     Route: 030
  17. GABAPENTIN [Concomitant]
     Active Substance: GABAPENTIN
     Indication: Product used for unknown indication
     Dosage: LAST SOLD DATE: 05-AUG-2022, 28-OCT-2022, 25-FEB-2023, 29-APR-2023, 12-JUL-2023, 16-SEP-2023, 06-JAN
     Route: 048
  18. METHYLPREDNISOLONE [Concomitant]
     Active Substance: METHYLPREDNISOLONE
     Indication: Product used for unknown indication
     Dosage: LAST SOLD DATE: 19-JAN-2024?DOSPAK 21 S
  19. MONTELUKAST [Concomitant]
     Active Substance: MONTELUKAST SODIUM
     Dosage: LAST SOLD DATE: 06-MAY-2023?TAKE 1 TABLET BY MOUTH EVERY DAY AT BEDTIME
     Route: 048
  20. MUPIROCIN [Concomitant]
     Active Substance: MUPIROCIN
     Indication: Product used for unknown indication
     Dosage: LAST SOLD DATE: 06-MAY-2023, 09-DEC-2023?22MG, APPLY SMALL AMOUNT TOPICALLY TO THE AFFECTED AREA THR
     Route: 061
  21. OFLOXACIN [Concomitant]
     Active Substance: OFLOXACIN
     Indication: Product used for unknown indication
     Dosage: LAST SOLD DATE: 27-NOV-2023?DO NOT OPEN PRIOR TO SURGERY - BRING BOTTLE TO SURGERY APPT.-- INSTILL 1
     Route: 047
  22. OSELTAMIVIR [Concomitant]
     Active Substance: OSELTAMIVIR
     Indication: Product used for unknown indication
     Dosage: LAST SOLD DATE: 19-JAN-2024?TAKE 1 CAPSULE BY MOUTH TWICE DAILY
     Route: 048
  23. PANTOPRAZOLE [Concomitant]
     Active Substance: PANTOPRAZOLE
     Indication: Product used for unknown indication
     Dosage: LAST SOLD DATE: 13-AUG-2022, 12-JUL-2023?TAKE 1 TABLET BY MOUTH EVERY DAY?TAKE 1 TABLET BY MOUTH BEF
     Route: 048
  24. PIOGLITAZONE [Concomitant]
     Active Substance: PIOGLITAZONE
     Indication: Product used for unknown indication
     Dosage: LAST SOLD DATE: 13-AUG-2022, 09-JUN-2023?TAKE 1 TABLET BY MOUTH EVERY DAY
     Route: 048
  25. ROSUVASTATIN [Concomitant]
     Active Substance: ROSUVASTATIN
     Indication: Product used for unknown indication
     Dosage: LAST SOLD DATE: 24-OCT-2023, 12-JUL-2023, 13-AUG-2022, 04-MAY-2023?TAKE 1 TABLET BY MOUTH EVERY DAY
     Route: 048

REACTIONS (2)
  - Adverse event [Unknown]
  - Off label use [Unknown]

NARRATIVE: CASE EVENT DATE: 20240401
